FAERS Safety Report 4455423-1 (Version None)
Quarter: 2004Q3

REPORT INFORMATION
  Report Type: 
  Country: None (occurrence: None)
  Receive Date: 20040922
  Receipt Date: 20040910
  Transmission Date: 20050211
  Serious: Yes (Hospitalization)
  Sender: FDA-Public Use
  Company Number: US-JNJFOC-20040903372

PATIENT
  Sex: Female
  Weight: 80 kg

DRUGS (10)
  1. REMICADE [Suspect]
     Route: 042
  2. REMICADE [Suspect]
     Indication: RHEUMATOID ARTHRITIS
     Route: 042
  3. METHOTREXATE [Concomitant]
     Indication: RHEUMATOID ARTHRITIS
  4. PREDNISONE [Concomitant]
     Indication: RHEUMATOID ARTHRITIS
  5. DICLOFENAC [Concomitant]
  6. FOLATE [Concomitant]
  7. GLUCOSAMINE [Concomitant]
  8. PREMARIN [Concomitant]
  9. PROTONIX [Concomitant]
  10. ETANERCEPT [Concomitant]

REACTIONS (3)
  - MYOCARDIAL INFARCTION [None]
  - PERICARDIAL EFFUSION [None]
  - PERICARDITIS [None]
